FAERS Safety Report 8259143-7 (Version None)
Quarter: 2012Q2

REPORT INFORMATION
  Report Type: 
  Country: None (occurrence: None)
  Receive Date: 20120403
  Receipt Date: 20120403
  Transmission Date: 20120825
  Serious: No
  Sender: FDA-Public Use
  Company Number: None

PATIENT

DRUGS (1)
  1. BYSTOLIC [Suspect]

REACTIONS (4)
  - EYE DISORDER [None]
  - PAIN [None]
  - MUSCLE DISORDER [None]
  - VISUAL ACUITY REDUCED [None]
